FAERS Safety Report 6663465-0 (Version None)
Quarter: 2010Q2

REPORT INFORMATION
  Report Type: 
  Country: None (occurrence: None)
  Receive Date: 20100401
  Receipt Date: 20100323
  Transmission Date: 20101027
  Serious: Yes (Death, Hospitalization, Other)
  Sender: FDA-Public Use
  Company Number: CA-CELGENEUS-028-C4047-10011497

PATIENT
  Sex: Female
  Weight: 53.5 kg

DRUGS (43)
  1. CC-4047 [Suspect]
     Indication: MULTIPLE MYELOMA
     Route: 048
     Dates: start: 20100105, end: 20100118
  2. CYCLOPHOSPHAMIDE [Suspect]
     Indication: MULTIPLE MYELOMA
     Route: 048
     Dates: start: 20100210, end: 20100213
  3. NORMAL SALINE [Concomitant]
     Indication: PROPHYLAXIS AGAINST DEHYDRATION
     Route: 051
     Dates: start: 20100105, end: 20100107
  4. NORMAL SALINE [Concomitant]
  5. ASPIRIN [Concomitant]
     Indication: THROMBOSIS PROPHYLAXIS
     Route: 048
     Dates: start: 20070101
  6. PREVACID [Concomitant]
     Route: 065
     Dates: start: 20080101
  7. ACYCLOVIR [Concomitant]
     Route: 048
     Dates: start: 20070101
  8. PAMIDRONATE DISODIUM [Concomitant]
     Route: 051
     Dates: start: 20100105, end: 20100105
  9. PAMIDRONATE DISODIUM [Concomitant]
     Indication: PROPHYLAXIS
     Route: 051
     Dates: start: 20100205, end: 20100205
  10. VITAMIN C [Concomitant]
     Indication: SUPPLEMENTATION THERAPY
     Route: 048
     Dates: start: 20100101
  11. ZINC [Concomitant]
     Indication: SUPPLEMENTATION THERAPY
     Route: 048
     Dates: start: 20100101
  12. VITAMIN D [Concomitant]
     Indication: SUPPLEMENTATION THERAPY
     Route: 048
     Dates: start: 20091201
  13. CALCIUM [Concomitant]
     Indication: SUPPLEMENTATION THERAPY
     Route: 048
     Dates: start: 20091201
  14. METOCLOPRAMIDE [Concomitant]
     Route: 048
     Dates: start: 20090101
  15. HYDROMORPHONE HCL [Concomitant]
     Indication: BACK PAIN
     Route: 048
     Dates: start: 20100105
  16. PERCOCET [Concomitant]
     Indication: BACK PAIN
     Route: 048
     Dates: start: 20100105
  17. PEG [Concomitant]
     Indication: CONSTIPATION PROPHYLAXIS
     Dosage: 250 CC
     Route: 048
     Dates: start: 20100105
  18. POTASSIUM CHLORIDE [Concomitant]
     Route: 051
     Dates: start: 20100105, end: 20100105
  19. K-DUR [Concomitant]
     Route: 048
     Dates: start: 20100105, end: 20100105
  20. ALTEPLASE [Concomitant]
     Indication: CHEST PAIN
     Route: 030
     Dates: start: 20100119, end: 20100131
  21. DOCUSATE SODIUM [Concomitant]
     Indication: CONSTIPATION
     Route: 048
     Dates: start: 20100119, end: 20100202
  22. DOCUSATE SODIUM [Concomitant]
     Route: 048
     Dates: start: 20100207, end: 20100213
  23. SENOKOT [Concomitant]
     Indication: CONSTIPATION
     Route: 048
     Dates: start: 20100119, end: 20100129
  24. SENOKOT [Concomitant]
     Route: 048
     Dates: start: 20100207, end: 20100213
  25. LACTULOSE [Concomitant]
     Indication: CONSTIPATION
     Route: 048
     Dates: start: 20100119, end: 20100129
  26. LACTULOSE [Concomitant]
     Route: 048
     Dates: start: 20100207, end: 20100213
  27. NEUPOGEN [Concomitant]
     Indication: PROPHYLAXIS
     Route: 058
     Dates: start: 20100121, end: 20100224
  28. GRANISTERON [Concomitant]
     Indication: NAUSEA
     Route: 051
     Dates: start: 20100122, end: 20100124
  29. BISACODYL [Concomitant]
     Indication: CONSTIPATION
     Route: 048
     Dates: start: 20100122, end: 20100213
  30. SODIUM BICARBONATE [Concomitant]
     Route: 048
     Dates: start: 20100122, end: 20100129
  31. NABILONE [Concomitant]
     Indication: NAUSEA
     Route: 048
     Dates: start: 20100124, end: 20100125
  32. AMLODIPINE BESYLATE [Concomitant]
     Indication: CHEST PAIN
     Route: 048
     Dates: start: 20100124, end: 20100207
  33. SODIUM PHOSPHATES [Concomitant]
     Indication: CONSTIPATION
     Route: 054
     Dates: start: 20100126, end: 20100213
  34. SCOPOLAMINE [Concomitant]
     Indication: NAUSEA
     Route: 058
     Dates: start: 20100213, end: 20100213
  35. NITROGLYCERIN [Concomitant]
     Indication: CHEST PAIN
     Route: 060
     Dates: start: 20100213, end: 20100213
  36. LOPERAZEPAM [Concomitant]
     Indication: ANXIETY
     Route: 058
     Dates: start: 20100119, end: 20100129
  37. METHADONE [Concomitant]
     Indication: PAIN
     Route: 048
     Dates: start: 20100209, end: 20100209
  38. HALOPERIDOL [Concomitant]
     Indication: ANXIETY
     Route: 048
     Dates: start: 20100210, end: 20100213
  39. HALOPERIDOL [Concomitant]
     Route: 058
     Dates: start: 20100210, end: 20100213
  40. ACETAMINOPHEN [Concomitant]
     Indication: PAIN
     Route: 048
     Dates: start: 20100207, end: 20100213
  41. ALMAGEL [Concomitant]
     Route: 048
     Dates: start: 20100207, end: 20100213
  42. PANTOPRAZOLE [Concomitant]
     Indication: REFLUX GASTRITIS
     Route: 048
     Dates: start: 20100207, end: 20100213
  43. MIRTAZAPINE [Concomitant]
     Indication: DEPRESSION
     Route: 048
     Dates: start: 20100207, end: 20100213

REACTIONS (3)
  - DISEASE PROGRESSION [None]
  - MUSCULOSKELETAL CHEST PAIN [None]
  - RENAL FAILURE ACUTE [None]
